FAERS Safety Report 15809044 (Version 1)
Quarter: 2019Q1

REPORT INFORMATION
  Report Type: Other
  Country: CN (occurrence: CN)
  Receive Date: 20190110
  Receipt Date: 20190110
  Transmission Date: 20190417
  Serious: Yes (Other)
  Sender: FDA-Public Use
  Company Number: CN-GE HEALTHCARE LIFE SCIENCES-2019CSU000130

PATIENT

DRUGS (2)
  1. OMNIPAQUE [Suspect]
     Active Substance: IOHEXOL
     Indication: COMPUTERISED TOMOGRAM
     Dosage: 85 ML, QD (AT A RATE OF 3.0 ML^S)
     Route: 042
     Dates: start: 20181120, end: 20181120
  2. OMNIPAQUE [Suspect]
     Active Substance: IOHEXOL
     Indication: ABDOMINAL MASS

REACTIONS (7)
  - Nasal congestion [Recovering/Resolving]
  - Sneezing [Recovering/Resolving]
  - Eyelid oedema [Recovering/Resolving]
  - Rash [Recovering/Resolving]
  - Hypoaesthesia oral [Recovering/Resolving]
  - Dysarthria [Recovering/Resolving]
  - Flushing [Recovering/Resolving]

NARRATIVE: CASE EVENT DATE: 20181120
